FAERS Safety Report 4738818-8 (Version None)
Quarter: 2005Q3

REPORT INFORMATION
  Report Type: 
  Country: None (occurrence: None)
  Receive Date: 20050804
  Receipt Date: 20050727
  Transmission Date: 20060218
  Serious: Yes (Life-Threatening, Hospitalization)
  Sender: FDA-Public Use
  Company Number: 2005JP001326

PATIENT
  Age: 57 Year
  Sex: Male
  Weight: 52 kg

DRUGS (6)
  1. PROGRAF [Suspect]
     Indication: RENAL TRANSPLANT
     Dosage: 1.50 MG, BID, ORAL
     Route: 048
     Dates: start: 20040510
  2. PREDNISONE [Suspect]
     Indication: RENAL TRANSPLANT
     Dosage: 10.00 MG, TID, ORAL
     Route: 048
     Dates: start: 20040610
  3. MYCOPHENOLATE MOFETIL (MYCOPHENOLAT4 MOFETIL) PER ORAL NOS [Suspect]
     Indication: RENAL TRANSPLANT
     Dosage: 1000.00 MG, BID, ORAL
     Route: 048
     Dates: start: 20040510
  4. THYRADIN (THYROID) [Concomitant]
  5. AMLODIPINE BESYLATE [Concomitant]
  6. FAMOTIDINE [Concomitant]

REACTIONS (5)
  - CHOLECYSTITIS INFECTIVE [None]
  - CYTOMEGALOVIRUS INFECTION [None]
  - GALLBLADDER PERFORATION [None]
  - GENERAL PHYSICAL HEALTH DETERIORATION [None]
  - HAEMOBILIA [None]
